FAERS Safety Report 24144092 (Version 2)
Quarter: 2024Q3

REPORT INFORMATION
  Report Type: Spontaneous
  Country: US (occurrence: US)
  Receive Date: 20240727
  Receipt Date: 20240809
  Transmission Date: 20241017
  Serious: Yes (Death, Hospitalization)
  Sender: TEVA
  Company Number: US-TEVA-VS-3222829

PATIENT
  Age: 33 Year
  Sex: Female

DRUGS (17)
  1. ETOPOSIDE [Suspect]
     Active Substance: ETOPOSIDE
     Indication: Choriocarcinoma
     Dosage: WITH PACLITAXEL
     Route: 065
  2. ETOPOSIDE [Suspect]
     Active Substance: ETOPOSIDE
     Indication: Choriocarcinoma
     Dosage: AS A PART OF EMA-EP REGIMEN
     Route: 065
  3. ETOPOSIDE [Suspect]
     Active Substance: ETOPOSIDE
     Indication: Choriocarcinoma
     Dosage: 1 CYCLE
     Route: 065
  4. ETOPOSIDE [Suspect]
     Active Substance: ETOPOSIDE
     Indication: Choriocarcinoma
     Dosage: AS A PART OF EMA-CO REGIMEN
     Route: 065
  5. PACLITAXEL [Suspect]
     Active Substance: PACLITAXEL
     Indication: Choriocarcinoma
     Dosage: WITH CISPLATIN
     Route: 065
  6. PACLITAXEL [Suspect]
     Active Substance: PACLITAXEL
     Indication: Choriocarcinoma
     Dosage: WITH CARBOPLATIN
     Route: 065
  7. PACLITAXEL [Suspect]
     Active Substance: PACLITAXEL
     Indication: Choriocarcinoma
     Dosage: WITH ETOPOSIDE
     Route: 065
  8. METHOTREXATE [Suspect]
     Active Substance: METHOTREXATE
     Indication: Choriocarcinoma
     Dosage: AS A PART OF EMA-CO REGIMEN
     Route: 065
  9. METHOTREXATE [Suspect]
     Active Substance: METHOTREXATE
     Indication: Choriocarcinoma
     Dosage: AS A PART OF EMA-EP REGIMEN
     Route: 065
  10. CYCLOPHOSPHAMIDE [Suspect]
     Active Substance: CYCLOPHOSPHAMIDE
     Indication: Choriocarcinoma
     Dosage: AS A PART OF EMA-CO REGIMEN
     Route: 065
  11. VINCRISTINE [Suspect]
     Active Substance: VINCRISTINE
     Indication: Choriocarcinoma
     Dosage: AS A PART OF EMA-CO REGIMEN
     Route: 065
  12. CISPLATIN [Suspect]
     Active Substance: CISPLATIN
     Indication: Choriocarcinoma
     Dosage: AS A PART OF EMA-EP REGIMEN
     Route: 065
  13. CISPLATIN [Suspect]
     Active Substance: CISPLATIN
     Indication: Choriocarcinoma
     Dosage: WITH PACLITAXEL
     Route: 065
  14. CISPLATIN [Suspect]
     Active Substance: CISPLATIN
     Indication: Choriocarcinoma
     Dosage: 1 CYCLE
     Route: 065
  15. CARBOPLATIN [Suspect]
     Active Substance: CARBOPLATIN
     Indication: Choriocarcinoma
     Dosage: WITH PACLITAXEL
     Route: 065
  16. ACTINOMYCIN D [Suspect]
     Active Substance: DACTINOMYCIN
     Indication: Choriocarcinoma
     Dosage: AS A PART OF EMA-EP REGIMEN
     Route: 065
  17. ACTINOMYCIN D [Suspect]
     Active Substance: DACTINOMYCIN
     Indication: Choriocarcinoma
     Dosage: AS A PART OF EMA-CO REGIMEN
     Route: 065

REACTIONS (4)
  - Drug ineffective [Fatal]
  - Pneumothorax spontaneous [Unknown]
  - Low lung compliance [Unknown]
  - Pulmonary fibrosis [Unknown]
